FAERS Safety Report 7898496-6 (Version None)
Quarter: 2011Q4

REPORT INFORMATION
  Report Type: 
  Country: None (occurrence: None)
  Receive Date: 20111107
  Receipt Date: 20111026
  Transmission Date: 20120403
  Serious: Yes (Other)
  Sender: FDA-Public Use
  Company Number: BR-BRISTOL-MYERS SQUIBB COMPANY-16200511

PATIENT
  Age: 78 Year
  Sex: Male
  Weight: 90 kg

DRUGS (5)
  1. INDAPAMIDE [Suspect]
     Dosage: INDAPAMIDE SR
     Dates: start: 20100505
  2. AMLODIPINE [Suspect]
     Dates: start: 20100505
  3. ONGLYZA [Suspect]
  4. IRBESARTAN [Suspect]
     Dates: start: 20100505, end: 20110401
  5. GLIMEPIRIDE [Suspect]

REACTIONS (3)
  - RENAL IMPAIRMENT [None]
  - PROTEINURIA [None]
  - BLOOD GLUCOSE INCREASED [None]
